FAERS Safety Report 7956670-4 (Version None)
Quarter: 2011Q4

REPORT INFORMATION
  Report Type: 
  Country: None (occurrence: None)
  Receive Date: 20111205
  Receipt Date: 20111129
  Transmission Date: 20120403
  Serious: Yes (Hospitalization)
  Sender: FDA-Public Use
  Company Number: CA-JNJFOC-20111200755

PATIENT
  Sex: Female

DRUGS (4)
  1. MONISTAT 7 COMBINATION PACK [Suspect]
     Route: 067
  2. MONISTAT 7 COMBINATION PACK [Suspect]
     Route: 061
  3. MONISTAT 7 COMBINATION PACK [Suspect]
     Indication: PRODUCT USED FOR UNKNOWN INDICATION
     Route: 067
  4. MONISTAT 7 COMBINATION PACK [Suspect]
     Route: 061

REACTIONS (1)
  - ADVERSE EVENT [None]
